FAERS Safety Report 18062275 (Version 1)
Quarter: 2020Q3

REPORT INFORMATION
  Report Type: Spontaneous
  Country: DE (occurrence: DE)
  Receive Date: 20200723
  Receipt Date: 20200723
  Transmission Date: 20201103
  Serious: Yes (Hospitalization)
  Sender: FDA-Public Use
  Company Number: DE-SAMSUNG BIOEPIS-SB-2020-22898

PATIENT
  Age: 50 Year
  Sex: Male

DRUGS (1)
  1. ADALIMUMAB [Suspect]
     Active Substance: ADALIMUMAB
     Indication: PRODUCT USED FOR UNKNOWN INDICATION
     Dosage: 14?TAGIG, UNKNOWN
     Route: 065

REACTIONS (4)
  - Dyspnoea exertional [Unknown]
  - Decreased appetite [Unknown]
  - C-reactive protein increased [Unknown]
  - Abdominal pain [Unknown]
